FAERS Safety Report 10983719 (Version 1)
Quarter: 2015Q2

REPORT INFORMATION
  Report Type: Spontaneous
  Country: US (occurrence: None)
  Receive Date: 20150402
  Receipt Date: 20150402
  Transmission Date: 20150821
  Serious: Yes (Other)
  Sender: FDA-Public Use
  Company Number: None

PATIENT
  Age: 58 Year
  Sex: Female
  Weight: 42.18 kg

DRUGS (9)
  1. MULTIVITS [Concomitant]
  2. ARMOUR THYROID [Concomitant]
     Active Substance: THYROID, PORCINE\THYROID, UNSPECIFIED
  3. VITAMIN D3 [Concomitant]
     Active Substance: CHOLECALCIFEROL
  4. SHOPRITE CLEAR LAXATIVE [Suspect]
     Active Substance: POLYETHYLENE GLYCOL 3350
     Indication: COLONOSCOPY
     Dosage: 238 GRAM BOTTLE ONCE AS PREP ORALLY
     Route: 048
     Dates: start: 20150206, end: 20150206
  5. LIALDA [Concomitant]
     Active Substance: MESALAMINE
  6. CALCIUM SUPPLEMENT [Concomitant]
     Active Substance: CALCIUM
  7. OMEGA 3^S [Concomitant]
  8. ALTEVIA [Concomitant]
  9. FLAXSEED [Concomitant]
     Active Substance: FLAX SEED

REACTIONS (2)
  - Malaise [None]
  - Drug ineffective [None]

NARRATIVE: CASE EVENT DATE: 20150206
